FAERS Safety Report 14608271 (Version 1)
Quarter: 2018Q1

REPORT INFORMATION
  Report Type: Spontaneous
  Country: FR (occurrence: FR)
  Receive Date: 20180307
  Receipt Date: 20180307
  Transmission Date: 20180509
  Serious: Yes (Other)
  Sender: FDA-Public Use
  Company Number: FR-SA-2018SA056552

PATIENT
  Age: 76 Year
  Sex: Male
  Weight: 63 kg

DRUGS (18)
  1. BCG-MEDAC [Suspect]
     Active Substance: BACILLUS CALMETTE-GUERIN ANTIGEN, UNSPECIFIED SUBSTRAIN
     Dosage: ROUTE: INTRAVESICAL
     Dates: start: 201708, end: 20180108
  2. PARACETAMOL [Concomitant]
     Active Substance: ACETAMINOPHEN
     Route: 048
  3. LOVENOX [Suspect]
     Active Substance: ENOXAPARIN SODIUM
     Route: 058
  4. OXYGEN. [Suspect]
     Active Substance: OXYGEN
     Dosage: ROUTE: INHALATION
  5. PARACETAMOL [Concomitant]
     Active Substance: ACETAMINOPHEN
     Route: 048
  6. PARACETAMOL [Concomitant]
     Active Substance: ACETAMINOPHEN
     Route: 048
  7. SODIUM CHLORIDE. [Concomitant]
     Active Substance: SODIUM CHLORIDE
     Route: 041
  8. SPIRAMYCINE [Concomitant]
     Active Substance: SPIRAMYCIN
     Route: 048
  9. TAREG [Concomitant]
     Active Substance: VALSARTAN
     Route: 048
  10. SPIRAMYCINE [Concomitant]
     Active Substance: SPIRAMYCIN
     Route: 048
  11. CEFOTAXIME SODIUM [Concomitant]
     Active Substance: CEFOTAXIME SODIUM
     Route: 048
  12. CEFOTAXIME SODIUM [Concomitant]
     Active Substance: CEFOTAXIME SODIUM
     Route: 048
  13. ELISOR [Concomitant]
     Active Substance: PRAVASTATIN SODIUM
     Dosage: FORMULATION: SCORED TABLET
     Route: 048
  14. CEFOTAXIME SODIUM [Concomitant]
     Active Substance: CEFOTAXIME SODIUM
     Route: 042
  15. CEFOTAXIME SODIUM [Concomitant]
     Active Substance: CEFOTAXIME SODIUM
     Route: 048
  16. SPIRAMYCINE [Concomitant]
     Active Substance: SPIRAMYCIN
     Route: 048
  17. SPIRAMYCINE [Concomitant]
     Active Substance: SPIRAMYCIN
     Route: 048
  18. PARACETAMOL [Concomitant]
     Active Substance: ACETAMINOPHEN
     Route: 048

REACTIONS (4)
  - Pulmonary tuberculosis [Not Recovered/Not Resolved]
  - Granulomatous liver disease [Not Recovered/Not Resolved]
  - Pyrexia [Not Recovered/Not Resolved]
  - Disseminated Bacillus Calmette-Guerin infection [Not Recovered/Not Resolved]

NARRATIVE: CASE EVENT DATE: 20180116
